FAERS Safety Report 6754940-9 (Version None)
Quarter: 2010Q2

REPORT INFORMATION
  Report Type: 
  Country: None (occurrence: None)
  Receive Date: 20100602
  Receipt Date: 20100517
  Transmission Date: 20101027
  Serious: Yes (Life-Threatening, Hospitalization)
  Sender: FDA-Public Use
  Company Number: CTI_01203_2010

PATIENT
  Sex: Male

DRUGS (11)
  1. MEIACT (MEIACT MS - CEFDITOREN PIVOXIL) (NOT SPECIFIED) [Suspect]
     Indication: COUGH
     Dosage: 300 MG ORAL
     Route: 048
     Dates: start: 20100317
  2. MEIACT (MEIACT MS - CEFDITOREN PIVOXIL) (NOT SPECIFIED) [Suspect]
     Indication: UPPER RESPIRATORY TRACT INFLAMMATION
     Dosage: 300 MG ORAL
     Route: 048
     Dates: start: 20100317
  3. UNSPECIFIED HERBAL (CHINESE HERBAL MEDICINE - NIGUTSU-TO) [Suspect]
     Indication: PERIARTHRITIS
     Dosage: 7.5 G ORAL
     Route: 048
     Dates: start: 20100113
  4. GLIMPERIDE [Concomitant]
  5. MECOBALAMIN [Concomitant]
  6. PIOGLITAZONE HYDROCHLORIDE [Concomitant]
  7. SITAGLIPTIN PHOSPHATE [Concomitant]
  8. ACETAMINOPHEN [Concomitant]
  9. SUPLATAST TOSILATE [Concomitant]
  10. DISPROPHYLLINE/PAPAVERINE HYDROCHLORIDE/DIPHENHYDRAMINE HYDROCHLORIDE/ [Concomitant]
  11. MONTELUKAST SODIUM [Concomitant]

REACTIONS (2)
  - INTERSTITIAL LUNG DISEASE [None]
  - LYMPHOCYTE STIMULATION TEST POSITIVE [None]
